FAERS Safety Report 5088264-5 (Version None)
Quarter: 2006Q3

REPORT INFORMATION
  Report Type: 
  Country: None (occurrence: None)
  Receive Date: 20060727
  Receipt Date: 20060613
  Transmission Date: 20061208
  Serious: Yes (Other)
  Sender: FDA-Public Use
  Company Number: 2006075931

PATIENT
  Age: 59 Year
  Sex: Female
  Weight: 54.4316 kg

DRUGS (11)
  1. LYRICA [Suspect]
     Indication: PAIN
     Dosage: 150 MG (50 MG 2 IN 1 D), ORAL
     Route: 048
     Dates: start: 20060501
  2. VICODIN (HYDROCODONE BITRATRATE, PARACETAMOL) [Concomitant]
  3. THYROID TAB [Concomitant]
  4. CALCITRIOL [Concomitant]
  5. CORTISOL [Concomitant]
  6. ESTROGENIC SUBSTANCE [Concomitant]
  7. TESTOSTERONE [Concomitant]
  8. PROGESTERONE [Concomitant]
  9. NUTRITIONAL SUPPLEMENT (GENERAL NUTRIENTS) [Concomitant]
  10. DHE (DEHYDROEMETINE) [Concomitant]
  11. PREGNENOLONE (PREGNENOLONE) [Concomitant]

REACTIONS (3)
  - INTRAOCULAR PRESSURE INCREASED [None]
  - OEDEMA PERIPHERAL [None]
  - VISION BLURRED [None]
